FAERS Safety Report 5593769-4 (Version None)
Quarter: 2007Q4

REPORT INFORMATION
  Report Type: 
  Country: None (occurrence: None)
  Receive Date: 20071218
  Receipt Date: 20070702
  Transmission Date: 20080405
  Serious: Yes (Hospitalization, Other)
  Sender: FDA-Public Use
  Company Number: 2006151251

PATIENT
  Age: 42 Year
  Sex: Male
  Weight: 68 kg

DRUGS (2)
  1. BEXTRA [Suspect]
     Indication: PAIN
     Dosage: 20 MG (20 MG,1 IN 1 D)
     Dates: start: 20030527
  2. VIOXX [Suspect]
     Indication: PAIN
     Dosage: (FREQUENCY: 1-2X),ORAL
     Route: 048
     Dates: start: 20030808, end: 20040602

REACTIONS (1)
  - MYOCARDIAL INFARCTION [None]
